FAERS Safety Report 21970779 (Version 3)
Quarter: 2023Q1

REPORT INFORMATION
  Report Type: Spontaneous
  Country: US (occurrence: US)
  Receive Date: 20230209
  Receipt Date: 20230215
  Transmission Date: 20230418
  Serious: Yes (Other)
  Sender: FDA-Public Use
  Company Number: US-Vifor (International) Inc.-VIT-2023-00874

PATIENT
  Sex: Female
  Weight: 62.5 kg

DRUGS (12)
  1. MIRCERA [Suspect]
     Active Substance: METHOXY POLYETHYLENE GLYCOL-EPOETIN BETA
     Indication: Nephrogenic anaemia
     Dosage: 2 X DURATION.
     Route: 042
     Dates: start: 20220315, end: 20220411
  2. MIRCERA [Suspect]
     Active Substance: METHOXY POLYETHYLENE GLYCOL-EPOETIN BETA
     Dosage: 2X DURATION.
     Route: 042
     Dates: start: 20220411, end: 20220517
  3. MIRCERA [Suspect]
     Active Substance: METHOXY POLYETHYLENE GLYCOL-EPOETIN BETA
     Dosage: 1X DURATION.
     Route: 042
     Dates: start: 20220517, end: 20220601
  4. MIRCERA [Suspect]
     Active Substance: METHOXY POLYETHYLENE GLYCOL-EPOETIN BETA
     Dosage: 4X DURATION.
     Route: 042
     Dates: start: 20220601, end: 20220725
  5. MIRCERA [Suspect]
     Active Substance: METHOXY POLYETHYLENE GLYCOL-EPOETIN BETA
     Dosage: 2X DURATION.
     Route: 042
     Dates: start: 20220725, end: 20220824
  6. MIRCERA [Suspect]
     Active Substance: METHOXY POLYETHYLENE GLYCOL-EPOETIN BETA
     Dosage: 2X DURATION.
     Route: 042
     Dates: start: 20220825, end: 20220910
  7. MIRCERA [Suspect]
     Active Substance: METHOXY POLYETHYLENE GLYCOL-EPOETIN BETA
     Dosage: 1X DURATION.
     Route: 042
     Dates: start: 20220910, end: 20220924
  8. MIRCERA [Suspect]
     Active Substance: METHOXY POLYETHYLENE GLYCOL-EPOETIN BETA
     Dosage: 1X DURATION.
     Route: 042
     Dates: start: 20221003, end: 20221024
  9. MIRCERA [Suspect]
     Active Substance: METHOXY POLYETHYLENE GLYCOL-EPOETIN BETA
     Dosage: 1X DURATION.
     Route: 042
     Dates: start: 20221024, end: 20221219
  10. EPOGEN [Concomitant]
     Active Substance: ERYTHROPOIETIN
     Route: 042
     Dates: start: 20230125, end: 20230204
  11. EPOGEN [Concomitant]
     Active Substance: ERYTHROPOIETIN
     Route: 042
     Dates: start: 20230204
  12. EPOGEN [Concomitant]
     Active Substance: ERYTHROPOIETIN
     Dosage: 1700 UNITS
     Dates: start: 20230208

REACTIONS (3)
  - Aplasia pure red cell [Unknown]
  - Haemoglobin decreased [Unknown]
  - Haematocrit decreased [Unknown]

NARRATIVE: CASE EVENT DATE: 20220101
